FAERS Safety Report 5766518-4 (Version None)
Quarter: 2008Q2

REPORT INFORMATION
  Report Type: 
  Country: None (occurrence: None)
  Receive Date: 20080612
  Receipt Date: 20080529
  Transmission Date: 20081010
  Serious: Yes (Other)
  Sender: FDA-Public Use
  Company Number: US-ROCHE-567491

PATIENT
  Sex: Female

DRUGS (4)
  1. MYCOPHENOLATE MOFETIL [Suspect]
     Indication: RENAL TRANSPLANT
     Route: 065
  2. CYCLOSPORINE [Suspect]
     Indication: RENAL TRANSPLANT
     Route: 048
     Dates: start: 20070502
  3. CYCLOSPORINE [Suspect]
     Dosage: ON AN UNSPECIFIED DATE DOSE WAS REDUCED.
     Route: 048
  4. PREDNISONE TAB [Suspect]
     Indication: RENAL TRANSPLANT
     Route: 065

REACTIONS (1)
  - BREAST CANCER [None]
